FAERS Safety Report 18706822 (Version 1)
Quarter: 2021Q1

REPORT INFORMATION
  Report Type: Spontaneous
  Country: US (occurrence: US)
  Receive Date: 20210105
  Receipt Date: 20210105
  Transmission Date: 20210419
  Serious: No
  Sender: FDA-Public Use
  Company Number: None

PATIENT
  Age: 67 Year
  Sex: Female
  Weight: 124.2 kg

DRUGS (17)
  1. CARVEDILOL. [Concomitant]
     Active Substance: CARVEDILOL
  2. BUPROPRION [Concomitant]
     Active Substance: BUPROPION
  3. DULOXETINE. [Concomitant]
     Active Substance: DULOXETINE
  4. MEDTRONIC FLUTICASONE CRT?D [Concomitant]
  5. LORATADINE. [Concomitant]
     Active Substance: LORATADINE
  6. ACETAMINOPHEN. [Concomitant]
     Active Substance: ACETAMINOPHEN
  7. ELIQUIS [Concomitant]
     Active Substance: APIXABAN
  8. LISINOPRIL. [Concomitant]
     Active Substance: LISINOPRIL
  9. CHLORPHENIRAMINE. [Concomitant]
     Active Substance: CHLORPHENIRAMINE
  10. CHLORHEXIDINE?PREP SPONGE USED IN OR [Suspect]
     Active Substance: CHLORHEXIDINE
     Indication: THERAPEUTIC SKIN CARE TOPICAL
     Route: 061
     Dates: start: 20200821, end: 20200821
  11. ROSUVASTATIN. [Concomitant]
     Active Substance: ROSUVASTATIN
  12. FISH OIL [Concomitant]
     Active Substance: FISH OIL
  13. DEPHROVITE [Concomitant]
  14. SPIRONOLACTONE. [Concomitant]
     Active Substance: SPIRONOLACTONE
  15. VITAMIN D [Concomitant]
     Active Substance: VITAMIN D NOS
  16. DOFETILIDE. [Concomitant]
     Active Substance: DOFETILIDE
  17. FUROSEMIDE. [Concomitant]
     Active Substance: FUROSEMIDE

REACTIONS (7)
  - Application site rash [None]
  - Dermatitis contact [None]
  - Application site discomfort [None]
  - Application site discharge [None]
  - Application site erythema [None]
  - Application site vesicles [None]
  - Rash pruritic [None]

NARRATIVE: CASE EVENT DATE: 20200823
